FAERS Safety Report 11037623 (Version 1)
Quarter: 2015Q2

REPORT INFORMATION
  Report Type: Spontaneous
  Country: US (occurrence: None)
  Receive Date: 20150415
  Receipt Date: 20150415
  Transmission Date: 20150821
  Serious: No
  Sender: FDA-Public Use
  Company Number: None

PATIENT
  Age: 22 Year
  Sex: Female
  Weight: 59.88 kg

DRUGS (1)
  1. XULANE [Suspect]
     Active Substance: ETHINYL ESTRADIOL\NORELGESTROMIN
     Indication: CONTRACEPTION
     Route: 061
     Dates: start: 20150401

REACTIONS (4)
  - Pruritus [None]
  - Hypoaesthesia [None]
  - Skin tightness [None]
  - Rash [None]

NARRATIVE: CASE EVENT DATE: 20150401
